FAERS Safety Report 4663607-2 (Version None)
Quarter: 2005Q2

REPORT INFORMATION
  Report Type: 
  Country: None (occurrence: None)
  Receive Date: 20050517
  Receipt Date: 20050502
  Transmission Date: 20051028
  Serious: Yes (Death)
  Sender: FDA-Public Use
  Company Number: US-GLAXOSMITHKLINE-A0556857A

PATIENT
  Age: 53 Year
  Sex: Female
  Weight: 75 kg

DRUGS (1)
  1. BC HEADACHE POWDER [Suspect]
     Indication: HEADACHE
     Route: 048
     Dates: start: 19510101

REACTIONS (6)
  - DIABETES MELLITUS [None]
  - DRUG ABUSER [None]
  - FALL [None]
  - HYPERTENSION [None]
  - LOWER LIMB FRACTURE [None]
  - UPPER LIMB FRACTURE [None]
